FAERS Safety Report 18418019 (Version 1)
Quarter: 2020Q4

REPORT INFORMATION
  Report Type: Spontaneous
  Country: IT (occurrence: IT)
  Receive Date: 20201023
  Receipt Date: 20201023
  Transmission Date: 20210114
  Serious: Yes (Hospitalization)
  Sender: FDA-Public Use
  Company Number: IT-ASTRAZENECA-2020SF34663

PATIENT
  Age: 74 Year
  Sex: Male

DRUGS (8)
  1. DURVALUMAB. [Suspect]
     Active Substance: DURVALUMAB
     Indication: LUNG ADENOCARCINOMA
     Dosage: 699.2MG EVERY CYCLE
     Route: 042
     Dates: start: 20190822, end: 20191127
  2. RANITIDINE. [Concomitant]
     Active Substance: RANITIDINE
     Indication: LUNG ADENOCARCINOMA
     Dosage: 50.0MG EVERY CYCLE
     Route: 042
     Dates: start: 20190416, end: 20190521
  3. PEMETREXED DISODIUM [Suspect]
     Active Substance: PEMETREXED DISODIUM
     Indication: LUNG ADENOCARCINOMA
     Dosage: 800.0MG EVERY CYCLE
     Route: 042
     Dates: start: 20200810
  4. GRANISETRON [Concomitant]
     Active Substance: GRANISETRON
     Indication: LUNG ADENOCARCINOMA
     Dosage: 3.0MG EVERY CYCLE
     Route: 042
     Dates: start: 20190416
  5. PACLITAXEL. [Suspect]
     Active Substance: PACLITAXEL
     Indication: LUNG ADENOCARCINOMA
     Dosage: 83.7MG EVERY CYCLE
     Route: 042
     Dates: start: 20190416, end: 20190521
  6. DEXAMETHASONE. [Concomitant]
     Active Substance: DEXAMETHASONE
     Indication: LUNG ADENOCARCINOMA
     Dosage: 16.0MG EVERY CYCLE
     Dates: start: 20190416
  7. CARBOPLATIN. [Suspect]
     Active Substance: CARBOPLATIN
     Indication: LUNG ADENOCARCINOMA
     Dosage: 165.1MG EVERY CYCLE
     Route: 042
     Dates: start: 20190416
  8. CHLORPHENAMINE [Concomitant]
     Active Substance: CHLORPHENIRAMINE MALEATE
     Indication: LUNG ADENOCARCINOMA
     Dosage: 10.0MG EVERY CYCLE
     Route: 042
     Dates: start: 20190416, end: 20190521

REACTIONS (2)
  - Dyspnoea [Recovering/Resolving]
  - Pulmonary embolism [Recovering/Resolving]

NARRATIVE: CASE EVENT DATE: 20200907
